FAERS Safety Report 23561913 (Version 5)
Quarter: 2025Q1

REPORT INFORMATION
  Report Type: Report from Study
  Country: FR (occurrence: FR)
  Receive Date: 20240225
  Receipt Date: 20250122
  Transmission Date: 20250408
  Serious: Yes (Hospitalization, Other)
  Sender: TAKEDA
  Company Number: FR-TAKEDA-2023TUS116191

PATIENT
  Age: 37 Year
  Sex: Female

DRUGS (13)
  1. TEDUGLUTIDE [Suspect]
     Active Substance: TEDUGLUTIDE
     Indication: Short-bowel syndrome
     Dosage: 4.2 MILLIGRAM, QD
     Dates: start: 20171204, end: 20190409
  2. TEDUGLUTIDE [Suspect]
     Active Substance: TEDUGLUTIDE
     Dosage: 3.7 MILLIGRAM, QD
     Dates: start: 20190410
  3. TEDUGLUTIDE [Suspect]
     Active Substance: TEDUGLUTIDE
  4. TEDUGLUTIDE [Suspect]
     Active Substance: TEDUGLUTIDE
  5. INFLIXIMAB [Concomitant]
     Active Substance: INFLIXIMAB
     Indication: Rheumatic disorder
     Dosage: 5 MILLIGRAM/KILOGRAM, 1/WEEK
     Dates: start: 20230309
  6. ELIQUIS [Concomitant]
     Active Substance: APIXABAN
     Indication: Cardiac disorder
     Dosage: 2.5 MILLIGRAM, BID
     Dates: start: 20220725
  7. ELIQUIS [Concomitant]
     Active Substance: APIXABAN
     Dosage: 5 MILLIGRAM, BID
     Dates: start: 20231206
  8. LANSOPRAZOLE [Concomitant]
     Active Substance: LANSOPRAZOLE
     Indication: Short-bowel syndrome
     Dosage: 30 MILLIGRAM, BID
     Dates: start: 20210326
  9. MORPHINE [Concomitant]
     Active Substance: MORPHINE
     Indication: Pain
     Dosage: 10 MILLIGRAM, BID
     Dates: start: 20240209
  10. MORPHINE [Concomitant]
     Active Substance: MORPHINE
     Dosage: 5 MILLIGRAM, QID
     Dates: start: 20240209
  11. MAGNESIUM [Concomitant]
     Active Substance: MAGNESIUM
     Indication: Prophylaxis
     Dosage: 184 MILLIGRAM, TID
     Dates: start: 20240322
  12. APIXABAN [Concomitant]
     Active Substance: APIXABAN
     Indication: Cardiac disorder
     Dosage: 5 MILLIGRAM, BID
     Dates: start: 20231206
  13. CERTOLIZUMAB PEGOL [Concomitant]
     Active Substance: CERTOLIZUMAB PEGOL
     Indication: Joint swelling
     Dates: start: 20240611, end: 20240912

REACTIONS (6)
  - Hepatic cytolysis [Recovered/Resolved]
  - Pain in extremity [Recovered/Resolved]
  - Haematoma [Recovered/Resolved]
  - Hypomagnesaemia [Recovered/Resolved]
  - Hypovitaminosis [Recovered/Resolved]
  - Mixed anxiety and depressive disorder [Not Recovered/Not Resolved]

NARRATIVE: CASE EVENT DATE: 20230704
